FAERS Safety Report 16739386 (Version 1)
Quarter: 2019Q3

REPORT INFORMATION
  Report Type: Report from Study
  Country: IN (occurrence: IN)
  Receive Date: 20190826
  Receipt Date: 20190826
  Transmission Date: 20191005
  Serious: Yes (Other)
  Sender: FDA-Public Use
  Company Number: IN-ZYDUS-040136

PATIENT

DRUGS (2)
  1. CEFALEXIN [Interacting]
     Active Substance: CEPHALEXIN
     Indication: URINARY TRACT INFECTION
     Route: 065
  2. METFORMIN [Suspect]
     Active Substance: METFORMIN HYDROCHLORIDE
     Indication: DIABETES MELLITUS
     Route: 065

REACTIONS (4)
  - Drug interaction [Unknown]
  - Lactic acidosis [Unknown]
  - Muscle spasms [Unknown]
  - Myalgia [Unknown]
